FAERS Safety Report 7077434-2 (Version None)
Quarter: 2010Q4

REPORT INFORMATION
  Report Type: 
  Country: None (occurrence: None)
  Receive Date: 20101025
  Receipt Date: 20101011
  Transmission Date: 20110411
  Serious: Yes (Other)
  Sender: FDA-Public Use
  Company Number: PR-001319

PATIENT
  Sex: Female
  Weight: 190 kg

DRUGS (3)
  1. KUVAN [Suspect]
     Indication: PHENYLKETONURIA
     Dosage: (1600 MG QD ORAL)
     Route: 048
     Dates: start: 20100917, end: 20100922
  2. CARNITOR [Concomitant]
  3. VITAMIN B-12 [Concomitant]

REACTIONS (4)
  - AGGRESSION [None]
  - AGITATION [None]
  - EPILEPSY [None]
  - PSYCHOMOTOR HYPERACTIVITY [None]
